FAERS Safety Report 4499061-3 (Version None)
Quarter: 2004Q4

REPORT INFORMATION
  Report Type: 
  Country: None (occurrence: None)
  Receive Date: 20041110
  Receipt Date: 20041110
  Transmission Date: 20050328
  Serious: Yes (Hospitalization)
  Sender: FDA-Public Use
  Company Number: None

PATIENT
  Age: 47 Year
  Sex: Female
  Weight: 64.06 kg

DRUGS (1)
  1. LOTREL [Suspect]
     Indication: HYPERTENSION
     Dosage: 10/20 DAILY ORAL
     Route: 048
     Dates: start: 20030909, end: 20040909

REACTIONS (2)
  - ANGIONEUROTIC OEDEMA [None]
  - RESPIRATORY DISORDER [None]
